FAERS Safety Report 6364719-8 (Version None)
Quarter: 2009Q3

REPORT INFORMATION
  Report Type: 
  Country: None (occurrence: None)
  Receive Date: 20090919
  Receipt Date: 20090727
  Transmission Date: 20100115
  Serious: No
  Sender: FDA-Public Use
  Company Number: US-ABBOTT-09P-163-0588380-00

PATIENT
  Sex: Female
  Weight: 113.5 kg

DRUGS (19)
  1. HUMIRA [Suspect]
     Indication: ARTHRITIS REACTIVE
     Route: 058
     Dates: start: 20090725
  2. HUMALOG [Concomitant]
     Indication: DIABETES MELLITUS
     Dosage: PER SLIDING SCALE, THREE TIMES, DAILY
     Route: 058
  3. LANTUS [Concomitant]
     Indication: DIABETES MELLITUS
     Dosage: PER SLIDING SCALE
     Route: 058
  4. SYMLIN [Concomitant]
     Indication: WEIGHT CONTROL
     Route: 058
  5. ZOCOR [Concomitant]
     Indication: BLOOD CHOLESTEROL
     Route: 048
  6. SINGULAIR [Concomitant]
     Indication: ASTHMA
     Route: 048
  7. SPIRONOLACTONE [Concomitant]
     Indication: SWELLING
     Route: 048
  8. PRILOSEC [Concomitant]
     Indication: GASTROOESOPHAGEAL REFLUX DISEASE
     Route: 048
  9. NEURONTIN [Concomitant]
     Indication: PAIN IN EXTREMITY
     Route: 048
  10. LORAZEPAM [Concomitant]
     Indication: ANXIETY
     Route: 048
  11. HYOSCAMINE [Concomitant]
     Indication: IRRITABLE BOWEL SYNDROME
     Route: 048
  12. ALLEGRA [Concomitant]
     Indication: HYPERSENSITIVITY
     Route: 048
  13. ACTOS [Concomitant]
     Indication: DIABETES MELLITUS
     Route: 048
  14. ZOLOFT [Concomitant]
     Indication: DEPRESSION
     Route: 048
  15. AMBIEN [Concomitant]
     Indication: INSOMNIA
     Route: 048
  16. VITAMIN D3 [Concomitant]
     Indication: VITAMIN SUPPLEMENTATION
     Route: 048
  17. DARVOCET-N 100 [Concomitant]
     Indication: ARTHRALGIA
     Route: 048
  18. AMRIX [Concomitant]
     Indication: RESTLESS LEGS SYNDROME
     Route: 048
  19. METHOTREXATE [Concomitant]
     Indication: ARTHRITIS REACTIVE
     Route: 048

REACTIONS (1)
  - INJECTION SITE PAIN [None]
